FAERS Safety Report 4709607-5 (Version None)
Quarter: 2005Q3

REPORT INFORMATION
  Report Type: 
  Country: None (occurrence: None)
  Receive Date: 20050706
  Receipt Date: 20050706
  Transmission Date: 20060218
  Serious: Yes (Other)
  Sender: FDA-Public Use
  Company Number: None

PATIENT
  Age: 50 Year
  Sex: Male

DRUGS (1)
  1. ISOVUE-370 [Suspect]
     Indication: COMPUTERISED TOMOGRAM
     Dosage: 125 ML    INTRAVENOU
     Route: 042
     Dates: start: 20050613, end: 20050613

REACTIONS (2)
  - PROCEDURAL COMPLICATION [None]
  - PRURITUS [None]
